FAERS Safety Report 9160698 (Version 2)
Quarter: 2013Q2

REPORT INFORMATION
  Report Type: Spontaneous
  Country: US (occurrence: US)
  Receive Date: 20130313
  Receipt Date: 20130416
  Transmission Date: 20140414
  Serious: Yes (Death, Hospitalization, Other)
  Sender: FDA-Public Use
  Company Number: US-PFIZER INC-2013079176

PATIENT
  Age: 82 Year
  Sex: Male
  Weight: 88.89 kg

DRUGS (15)
  1. FLUCONAZOLE [Suspect]
     Dosage: UNK
  2. PREDNISONE [Suspect]
     Indication: B-CELL LYMPHOMA
     Dosage: 120 MG, 1X/DAY
     Route: 048
  3. ETOPOSIDE [Suspect]
     Indication: B-CELL LYMPHOMA
     Dosage: UNK
  4. MATULANE [Suspect]
     Indication: B-CELL LYMPHOMA
     Dosage: 100 MG, 1X/DAY
     Route: 048
     Dates: start: 20121211
  5. RITUXAN [Suspect]
     Indication: B-CELL LYMPHOMA
     Dosage: UNK
  6. CYTOXAN [Suspect]
     Indication: B-CELL LYMPHOMA
     Dosage: UNK
  7. ALLOPURINOL [Concomitant]
  8. FUROSEMIDE [Concomitant]
  9. LISINOPRIL [Concomitant]
  10. ATIVAN [Concomitant]
  11. POTASSIUM [Concomitant]
     Dosage: UNK
  12. COMPAZINE [Concomitant]
  13. TOPROL [Concomitant]
  14. ZOFRAN [Concomitant]
  15. ZOSYN [Concomitant]

REACTIONS (17)
  - Pancreatitis acute [Fatal]
  - Cardiac failure acute [Unknown]
  - Renal failure chronic [Unknown]
  - Malnutrition [Unknown]
  - Pleural effusion [Unknown]
  - Generalised oedema [Unknown]
  - Leukocytosis [Unknown]
  - Anaemia [Unknown]
  - Hypoalbuminaemia [Unknown]
  - Nausea [Not Recovered/Not Resolved]
  - Pyrexia [Unknown]
  - Abdominal pain upper [Unknown]
  - Asthenia [Unknown]
  - Blood creatinine increased [Unknown]
  - Fatigue [Recovering/Resolving]
  - Neutropenia [Recovering/Resolving]
  - Fatigue [Unknown]
